FAERS Safety Report 13841884 (Version 1)
Quarter: 2017Q3

REPORT INFORMATION
  Report Type: Report from Study
  Country: US (occurrence: US)
  Receive Date: 20170807
  Receipt Date: 20170807
  Transmission Date: 20171127
  Serious: No
  Sender: FDA-Public Use
  Company Number: US-AMGEN-USASL2017052364

PATIENT
  Age: 65 Year
  Sex: Female

DRUGS (1)
  1. NPLATE [Suspect]
     Active Substance: ROMIPLOSTIM
     Indication: IMMUNE THROMBOCYTOPENIC PURPURA
     Dosage: UNK
     Route: 065

REACTIONS (4)
  - Myalgia [Unknown]
  - Lacrimation increased [Unknown]
  - Paraesthesia [Unknown]
  - Feeling hot [Unknown]

NARRATIVE: CASE EVENT DATE: 20170404
